FAERS Safety Report 5107023-8 (Version None)
Quarter: 2006Q3

REPORT INFORMATION
  Report Type: 
  Country: None (occurrence: None)
  Receive Date: 20060913
  Receipt Date: 20060905
  Transmission Date: 20061208
  Serious: Yes (Other)
  Sender: FDA-Public Use
  Company Number: BR-2006-022276

PATIENT
  Age: 17 Year
  Sex: Female

DRUGS (1)
  1. YASMIN [Suspect]
     Indication: DYSMENORRHOEA
     Dosage: 1 TAB (S), ORAL
     Route: 048
     Dates: start: 20060401, end: 20060801

REACTIONS (12)
  - ABDOMINAL PAIN [None]
  - ASTHENIA [None]
  - BLINDNESS UNILATERAL [None]
  - BLOOD THYROID STIMULATING HORMONE INCREASED [None]
  - BLOOD URIC ACID DECREASED [None]
  - COUGH [None]
  - DIARRHOEA [None]
  - DIZZINESS [None]
  - HEADACHE [None]
  - LACTOSE INTOLERANCE [None]
  - PAIN IN EXTREMITY [None]
  - PELVIC PAIN [None]
